FAERS Safety Report 7875784-0 (Version None)
Quarter: 2011Q4

REPORT INFORMATION
  Report Type: 
  Country: None (occurrence: None)
  Receive Date: 20111031
  Receipt Date: 20111024
  Transmission Date: 20120403
  Serious: Yes (Other)
  Sender: FDA-Public Use
  Company Number: US-AMGEN-USASP2011028038

PATIENT
  Age: 64 Year
  Sex: Male

DRUGS (28)
  1. NPLATE [Suspect]
  2. CORTICOSTEROIDS [Concomitant]
     Indication: IDIOPATHIC THROMBOCYTOPENIC PURPURA
  3. NPLATE [Suspect]
  4. NPLATE [Suspect]
  5. NPLATE [Suspect]
  6. NPLATE [Suspect]
  7. NPLATE [Suspect]
  8. NPLATE [Suspect]
  9. NPLATE [Suspect]
  10. NPLATE [Suspect]
     Indication: IDIOPATHIC THROMBOCYTOPENIC PURPURA
     Dosage: 8 MUG/KG, UNK
     Dates: start: 20091120, end: 20101129
  11. NPLATE [Suspect]
  12. NPLATE [Suspect]
  13. NPLATE [Suspect]
  14. NPLATE [Suspect]
  15. NPLATE [Suspect]
  16. NPLATE [Suspect]
  17. NPLATE [Suspect]
  18. NPLATE [Suspect]
  19. NPLATE [Suspect]
  20. NPLATE [Suspect]
  21. NPLATE [Suspect]
  22. NPLATE [Suspect]
  23. NPLATE [Suspect]
  24. NPLATE [Suspect]
  25. NPLATE [Suspect]
  26. NPLATE [Suspect]
  27. NPLATE [Suspect]
  28. NPLATE [Suspect]

REACTIONS (6)
  - DRUG INEFFECTIVE [None]
  - ORAL PAIN [None]
  - MUCOSA VESICLE [None]
  - EVANS SYNDROME [None]
  - THROMBOCYTOPENIA [None]
  - THERAPEUTIC RESPONSE DECREASED [None]
